FAERS Safety Report 14943381 (Version 1)
Quarter: 2018Q2

REPORT INFORMATION
  Report Type: Report from Study
  Country: US (occurrence: US)
  Receive Date: 20180528
  Receipt Date: 20180528
  Transmission Date: 20180711
  Serious: Yes (Hospitalization, Other)
  Sender: FDA-Public Use
  Company Number: US-BRISTOL-MYERS SQUIBB COMPANY-BMS-2018-047179

PATIENT
  Age: 59 Year
  Sex: Male

DRUGS (2)
  1. NKTR-214 [Suspect]
     Active Substance: INVESTIGATIONAL PRODUCT
     Indication: SARCOMA
     Dosage: UNK
     Route: 065
     Dates: start: 20180413
  2. NIVOLUMAB [Suspect]
     Active Substance: NIVOLUMAB
     Indication: SARCOMA
     Dosage: UNK
     Route: 065
     Dates: start: 20180413

REACTIONS (2)
  - Hypotension [Recovered/Resolved]
  - Acute kidney injury [Recovered/Resolved]

NARRATIVE: CASE EVENT DATE: 20180515
